FAERS Safety Report 5344234-0 (Version None)
Quarter: 2007Q2

REPORT INFORMATION
  Report Type: 
  Country: None (occurrence: None)
  Receive Date: 20070416
  Receipt Date: 20070104
  Transmission Date: 20071010
  Serious: No
  Sender: FDA-Public Use
  Company Number: 2007SP000045

PATIENT
  Age: 86 Year
  Sex: Female
  Weight: 57.6068 kg

DRUGS (1)
  1. LUNESTA [Suspect]
     Indication: INSOMNIA
     Dosage: 2 MG;HS;ORAL
     Route: 048
     Dates: start: 20061212, end: 20061213

REACTIONS (1)
  - PARADOXICAL DRUG REACTION [None]
